FAERS Safety Report 8215605-X (Version None)
Quarter: 2012Q1

REPORT INFORMATION
  Report Type: 
  Country: None (occurrence: None)
  Receive Date: 20120316
  Receipt Date: 20120307
  Transmission Date: 20120608
  Serious: Yes (Hospitalization)
  Sender: FDA-Public Use
  Company Number: US-ROCHE-1047640

PATIENT

DRUGS (4)
  1. PACLITAXEL [Suspect]
     Indication: BREAST CANCER
     Route: 042
     Dates: start: 20111024
  2. HERCEPTIN [Suspect]
     Dosage: OVER 30 MIN FOR 15 WKS
     Route: 042
  3. LAPATINIB [Suspect]
     Indication: BREAST CANCER
     Dosage: LAST DOSE: 19 DEC2011
     Route: 048
     Dates: start: 20111024
  4. HERCEPTIN [Suspect]
     Indication: BREAST CANCER
     Dosage: OVER 90 MIN WK 1
     Route: 042
     Dates: start: 20111024

REACTIONS (4)
  - EMBOLISM [None]
  - PYREXIA [None]
  - CYSTITIS [None]
  - DYSPNOEA [None]
